FAERS Safety Report 25424906 (Version 1)
Quarter: 2025Q2

REPORT INFORMATION
  Report Type: Spontaneous
  Country: IE (occurrence: IE)
  Receive Date: 20250611
  Receipt Date: 20250611
  Transmission Date: 20250716
  Serious: Yes (Other)
  Sender: ROCHE
  Company Number: IE-ROCHE-10000307992

PATIENT
  Age: 71 Year
  Sex: Male

DRUGS (1)
  1. CELLCEPT [Suspect]
     Active Substance: MYCOPHENOLATE MOFETIL
     Indication: Product used for unknown indication
     Route: 065

REACTIONS (3)
  - Myasthenia gravis [Unknown]
  - Cerebrovascular accident [Unknown]
  - Bipolar disorder [Unknown]
